FAERS Safety Report 10067292 (Version 4)
Quarter: 2015Q1

REPORT INFORMATION
  Report Type: Spontaneous
  Country: US (occurrence: None)
  Receive Date: 20140407
  Receipt Date: 20150323
  Transmission Date: 20150720
  Serious: Yes (Hospitalization, Other)
  Sender: FDA-Public Use
  Company Number: 2014P1002729

PATIENT
  Age: 83 Year
  Sex: Female
  Weight: 63.5 kg

DRUGS (4)
  1. SPIRIVA [Suspect]
     Active Substance: TIOTROPIUM BROMIDE MONOHYDRATE
     Indication: PNEUMONIA
     Dosage: RESPIRATORY (INHALATION)
     Route: 055
  2. SPIRIVA [Suspect]
     Active Substance: TIOTROPIUM BROMIDE MONOHYDRATE
     Indication: BRONCHITIS
     Dosage: RESPIRATORY (INHALATION)
     Route: 055
  3. PROPYLTHIOURACIL. [Suspect]
     Active Substance: PROPYLTHIOURACIL
     Indication: BASEDOW^S DISEASE
     Dosage: 300 MG (100 MG,3 IN 1 D),ORAL
     Route: 048
     Dates: start: 2007, end: 2013
  4. PREDNISONE. [Suspect]
     Active Substance: PREDNISONE
     Indication: VASCULITIS

REACTIONS (39)
  - Viral infection [None]
  - Bronchitis [None]
  - Weight decreased [None]
  - Arthralgia [None]
  - Small cell lung cancer [None]
  - Abdominal distension [None]
  - Tremor [None]
  - Cyanosis [None]
  - Pneumonia bacterial [None]
  - Systemic lupus erythematosus [None]
  - Vomiting [None]
  - Thyroid disorder [None]
  - Chronic obstructive pulmonary disease [None]
  - Cholecystectomy [None]
  - Blood pressure increased [None]
  - Weight fluctuation [None]
  - Weight increased [None]
  - Dysphagia [None]
  - Feeling cold [None]
  - Joint arthroplasty [None]
  - Butterfly rash [None]
  - Pain [None]
  - Musculoskeletal stiffness [None]
  - Diarrhoea [None]
  - Pyrexia [None]
  - Faecal incontinence [None]
  - Nasal congestion [None]
  - Pneumonia [None]
  - Vasculitis [None]
  - Abdominal pain upper [None]
  - Erythema [None]
  - Skin discolouration [None]
  - Lung neoplasm [None]
  - Epistaxis [None]
  - Hypoaesthesia [None]
  - Pollakiuria [None]
  - Anxiety [None]
  - Constipation [None]
  - Tongue discolouration [None]

NARRATIVE: CASE EVENT DATE: 2009
